FAERS Safety Report 25947443 (Version 1)
Quarter: 2025Q4

REPORT INFORMATION
  Report Type: Spontaneous
  Country: CA (occurrence: CA)
  Receive Date: 20251022
  Receipt Date: 20251022
  Transmission Date: 20260118
  Serious: Yes (Other)
  Sender: DR REDDYS
  Company Number: CA-DRL-USA-CAN/2025/10/015722

PATIENT
  Age: 45 Year
  Sex: Female

DRUGS (1)
  1. LENALIDOMIDE [Suspect]
     Active Substance: LENALIDOMIDE
     Indication: Plasma cell myeloma
     Route: 048

REACTIONS (12)
  - Alanine aminotransferase increased [Unknown]
  - Aspartate aminotransferase increased [Unknown]
  - Basophil count increased [Unknown]
  - Blood alkaline phosphatase increased [Unknown]
  - Blood calcium decreased [Unknown]
  - Blood lactate dehydrogenase increased [Unknown]
  - Lymphocyte count decreased [Unknown]
  - Head discomfort [Unknown]
  - Neutrophil count decreased [Unknown]
  - Platelet count decreased [Unknown]
  - White blood cell count decreased [Unknown]
  - Product dose omission issue [Unknown]
